FAERS Safety Report 6834927-8 (Version None)
Quarter: 2010Q3

REPORT INFORMATION
  Report Type: 
  Country: None (occurrence: None)
  Receive Date: 20100712
  Receipt Date: 20070417
  Transmission Date: 20110219
  Serious: No
  Sender: FDA-Public Use
  Company Number: US-PFIZER INC-2007031229

PATIENT
  Sex: Female
  Weight: 77.3 kg

DRUGS (5)
  1. CHANTIX [Suspect]
     Indication: SMOKING CESSATION THERAPY
     Dates: start: 20070405
  2. ANTIHYPERTENSIVES [Concomitant]
     Indication: HYPERTENSION
  3. DRUG, UNSPECIFIED [Concomitant]
  4. SERUMLIPIDREDUCING AGENTS [Concomitant]
     Indication: BLOOD CHOLESTEROL INCREASED
  5. LEXAPRO [Concomitant]

REACTIONS (1)
  - NAUSEA [None]
